FAERS Safety Report 7356065-0 (Version None)
Quarter: 2011Q1

REPORT INFORMATION
  Report Type: 
  Country: None (occurrence: None)
  Receive Date: 20110316
  Receipt Date: 20110307
  Transmission Date: 20110831
  Serious: Yes (Other)
  Sender: FDA-Public Use
  Company Number: SE-ELI_LILLY_AND_COMPANY-SE201102005870

PATIENT
  Age: 55 Year
  Sex: Male

DRUGS (2)
  1. CODEINE [Concomitant]
     Indication: PAIN IN EXTREMITY
  2. STRATTERA [Suspect]
     Indication: ATTENTION DEFICIT/HYPERACTIVITY DISORDER
     Dosage: 60 MG, UNK

REACTIONS (1)
  - RAYNAUD'S PHENOMENON [None]
